FAERS Safety Report 8393382-X (Version None)
Quarter: 2012Q2

REPORT INFORMATION
  Report Type: 
  Country: None (occurrence: None)
  Receive Date: 20120529
  Receipt Date: 20120523
  Transmission Date: 20120825
  Serious: Yes (Hospitalization)
  Sender: FDA-Public Use
  Company Number: US-TEVA-339607USA

PATIENT
  Age: 5 Year
  Sex: Female
  Weight: 21.4 kg

DRUGS (5)
  1. MITOXANTRONE [Suspect]
     Indication: ACUTE PROMYELOCYTIC LEUKAEMIA
     Dates: start: 20111219
  2. TRISENOX [Suspect]
     Indication: ACUTE PROMYELOCYTIC LEUKAEMIA
     Dates: start: 20120413
  3. CYTARABINE [Suspect]
     Indication: ACUTE PROMYELOCYTIC LEUKAEMIA
     Dates: start: 20111219
  4. CYTARABINE [Suspect]
     Dosage: HIGH DOSE
     Dates: start: 20120425
  5. TRETINOIN [Suspect]
     Indication: ACUTE PROMYELOCYTIC LEUKAEMIA
     Dates: start: 20111219

REACTIONS (5)
  - FEBRILE NEUTROPENIA [None]
  - ENDOCARDITIS [None]
  - BACTERIAL INFECTION [None]
  - PLATELET COUNT DECREASED [None]
  - WHITE BLOOD CELL COUNT DECREASED [None]
